FAERS Safety Report 4768413-6 (Version None)
Quarter: 2005Q3

REPORT INFORMATION
  Report Type: 
  Country: None (occurrence: None)
  Receive Date: 20050906
  Receipt Date: 20050718
  Transmission Date: 20060218
  Serious: No
  Sender: FDA-Public Use
  Company Number: 2005-BP-12195BP

PATIENT
  Age: 67 Year
  Sex: Male

DRUGS (5)
  1. SPIRIVA [Suspect]
     Indication: ASTHMA
     Dosage: 18 MCG (18 MCG,QD), IH
     Route: 055
     Dates: start: 20050629, end: 20050707
  2. ADVAIR DISKUS 100/50 [Concomitant]
  3. NASONEX [Concomitant]
  4. VITAMINS (VITAMINS) [Concomitant]
  5. AMIEN (ZOLPIDEM TARTRATE) [Concomitant]

REACTIONS (2)
  - BLOOD PRESSURE INCREASED [None]
  - URINE OUTPUT INCREASED [None]
